FAERS Safety Report 6109431-5 (Version None)
Quarter: 2009Q1

REPORT INFORMATION
  Report Type: 
  Country: None (occurrence: None)
  Receive Date: 20090310
  Receipt Date: 20090306
  Transmission Date: 20090719
  Serious: Yes (Hospitalization)
  Sender: FDA-Public Use
  Company Number: B0563663A

PATIENT
  Age: 34 Year
  Sex: Female
  Weight: 52 kg

DRUGS (5)
  1. FLOLAN [Suspect]
     Indication: MIXED CONNECTIVE TISSUE DISEASE
     Route: 042
     Dates: start: 20030715
  2. REVATIO [Concomitant]
     Route: 048
  3. PARIET [Concomitant]
     Route: 048
  4. BIOFERMIN [Concomitant]
     Route: 048
  5. GASCON [Concomitant]
     Route: 048

REACTIONS (10)
  - ANOREXIA [None]
  - CATHETER RELATED INFECTION [None]
  - CATHETER SITE PAIN [None]
  - DIARRHOEA [None]
  - NAUSEA [None]
  - OESOPHAGEAL HYPOMOTILITY [None]
  - PURULENT DISCHARGE [None]
  - PYREXIA [None]
  - STAPHYLOCOCCAL INFECTION [None]
  - VOMITING [None]
